FAERS Safety Report 7981117-1 (Version None)
Quarter: 2011Q4

REPORT INFORMATION
  Report Type: 
  Country: None (occurrence: None)
  Receive Date: 20111212
  Receipt Date: 20111128
  Transmission Date: 20120403
  Serious: Yes (Death)
  Sender: FDA-Public Use
  Company Number: 2011MA016917

PATIENT
  Age: 83 Year
  Sex: Male
  Weight: 72.5755 kg

DRUGS (40)
  1. DIGOXIN [Suspect]
     Indication: HEART RATE IRREGULAR
     Dosage: 0.25 MG;QD;PO
     Route: 048
     Dates: start: 19981217, end: 20071219
  2. AMIODARONE HCL [Concomitant]
  3. CEFUROXIME [Concomitant]
  4. CHROMAGEN [Concomitant]
  5. DIOVAN [Concomitant]
  6. DITROPAN XL [Concomitant]
  7. PHENAZOPYRIDINE HCL TAB [Concomitant]
  8. CARBIDOPA [Concomitant]
  9. NAMENDA [Concomitant]
  10. PLAVIX [Concomitant]
  11. ARICEPT [Concomitant]
  12. RELAFEN [Concomitant]
  13. WARFARIN SODIUM [Concomitant]
  14. CEPHALEXIN [Concomitant]
  15. CIPROFLOXACIN [Concomitant]
  16. LOTREL [Concomitant]
  17. MOBIC [Concomitant]
  18. NEXIUM [Concomitant]
  19. SULFAMETHOXAZOLE [Concomitant]
  20. FAMOTIDINE [Concomitant]
  21. AMLODIPINE [Concomitant]
  22. EXELON [Concomitant]
  23. PROSCAR [Concomitant]
  24. RANITIDINE [Concomitant]
  25. HYTRIN [Concomitant]
  26. STOOL SOFTENER [Concomitant]
  27. AVODART [Concomitant]
  28. LEVODOP [Concomitant]
  29. DIOVAN HCT [Concomitant]
  30. ANTIBIOTICS [Concomitant]
  31. CELEBREX [Concomitant]
  32. DOXYCYCLINE [Concomitant]
  33. RYTHMOL [Concomitant]
  34. FLOMAX [Concomitant]
  35. GLYCOLAX [Concomitant]
  36. HELIDAC [Concomitant]
  37. MEGESTROL ACETATE [Concomitant]
  38. ZELNORM [Concomitant]
  39. ASPIRIN [Concomitant]
  40. DITROPAN [Concomitant]

REACTIONS (54)
  - MUSCULAR WEAKNESS [None]
  - BALANCE DISORDER [None]
  - INCORRECT DOSE ADMINISTERED [None]
  - DYSPNOEA EXERTIONAL [None]
  - CONDITION AGGRAVATED [None]
  - NECK PAIN [None]
  - INTERVERTEBRAL DISC DEGENERATION [None]
  - ARRHYTHMIA [None]
  - DIZZINESS [None]
  - FALL [None]
  - ATRIAL FIBRILLATION [None]
  - CORONARY ARTERY DISEASE [None]
  - SUPRAVENTRICULAR EXTRASYSTOLES [None]
  - SPINAL COLUMN STENOSIS [None]
  - CATARACT OPERATION [None]
  - DYSARTHRIA [None]
  - VERTIGO [None]
  - SPINAL FUSION ACQUIRED [None]
  - FATIGUE [None]
  - RIB FRACTURE [None]
  - ATRIAL TACHYCARDIA [None]
  - HIP FRACTURE [None]
  - GASTROOESOPHAGEAL REFLUX DISEASE [None]
  - OSTEOARTHRITIS [None]
  - MEMORY IMPAIRMENT [None]
  - DEMENTIA [None]
  - UNEVALUABLE EVENT [None]
  - INGUINAL HERNIA REPAIR [None]
  - HYPOACUSIS [None]
  - GAIT DISTURBANCE [None]
  - CAROTID ARTERIOSCLEROSIS [None]
  - VERTEBRAL FORAMINAL STENOSIS [None]
  - SINUS TACHYCARDIA [None]
  - SINUS ARRHYTHMIA [None]
  - ATRIAL FLUTTER [None]
  - PROSTATE CANCER [None]
  - INJURY [None]
  - ECONOMIC PROBLEM [None]
  - RESPIRATORY FAILURE [None]
  - LABILE HYPERTENSION [None]
  - TRANSIENT ISCHAEMIC ATTACK [None]
  - ESSENTIAL HYPERTENSION [None]
  - TONSILLECTOMY [None]
  - ADENOIDECTOMY [None]
  - CARDIAC FAILURE [None]
  - CEREBROVASCULAR ACCIDENT [None]
  - ROTATOR CUFF SYNDROME [None]
  - JOINT DISLOCATION [None]
  - VENTRICULAR EXTRASYSTOLES [None]
  - BRAIN STEM HAEMORRHAGE [None]
  - CEREBRAL ATROPHY [None]
  - TREMOR [None]
  - MENTAL DISORDER [None]
  - PNEUMONIA [None]
